FAERS Safety Report 16456450 (Version 1)
Quarter: 2019Q2

REPORT INFORMATION
  Report Type: Spontaneous
  Country: CA (occurrence: CA)
  Receive Date: 20190620
  Receipt Date: 20190620
  Transmission Date: 20190711
  Serious: Yes (Other)
  Sender: FDA-Public Use
  Company Number: CA-TEVA-2019-CA-1065715

PATIENT
  Age: 41 Year
  Sex: Female
  Weight: 71.73 kg

DRUGS (1)
  1. METHYLPHENIDATE SR [Suspect]
     Active Substance: METHYLPHENIDATE HYDROCHLORIDE
     Indication: NARCOLEPSY
     Route: 048

REACTIONS (2)
  - Narcolepsy [Unknown]
  - Drug ineffective [Unknown]
